FAERS Safety Report 9402347 (Version 1)
Quarter: 2013Q4

REPORT INFORMATION
  Report Type: Spontaneous
  Country: US (occurrence: None)
  Receive Date: 20130712
  Receipt Date: 20130712
  Transmission Date: 20140711
  Serious: Yes (Hospitalization)
  Sender: FDA-Public Use
  Company Number: None

PATIENT
  Age: 68 Year
  Sex: Female
  Weight: 120.39 kg

DRUGS (13)
  1. ERLOTINIB [Suspect]
     Indication: NON-SMALL CELL LUNG CANCER
     Dates: start: 20120615, end: 20130711
  2. CALCIUM + D [Concomitant]
  3. DELURA [Concomitant]
  4. FISH OIL CAPSULE [Concomitant]
  5. GLUCOSAMINE [Concomitant]
  6. IBUPROFEN [Concomitant]
  7. LORATADINE [Concomitant]
  8. MULTIVITAMIN [Concomitant]
  9. SLOW FE [Concomitant]
  10. THYROID EXTRACT [Concomitant]
  11. TIROSINT [Concomitant]
  12. VITAMIN C [Concomitant]
  13. VITAMIN D2 [Concomitant]

REACTIONS (2)
  - Haemoptysis [None]
  - Non-small cell lung cancer [None]
